FAERS Safety Report 14935618 (Version 1)
Quarter: 2018Q2

REPORT INFORMATION
  Report Type: Spontaneous
  Country: US (occurrence: US)
  Receive Date: 20180524
  Receipt Date: 20180524
  Transmission Date: 20180711
  Serious: No
  Sender: FDA-Public Use
  Company Number: US-TESARO, INC.-US-2017TSO03761

PATIENT

DRUGS (6)
  1. ZEJULA [Suspect]
     Active Substance: NIRAPARIB
     Dosage: 100 MG, QD
     Route: 048
     Dates: start: 20180101
  2. LISINOPRIL. [Suspect]
     Active Substance: LISINOPRIL
     Indication: BLOOD PRESSURE ABNORMAL
     Dosage: UNK
  3. ZEJULA [Suspect]
     Active Substance: NIRAPARIB
     Dosage: 200 MG, QD
     Route: 048
  4. ZEJULA [Suspect]
     Active Substance: NIRAPARIB
     Indication: OVARIAN CANCER
     Dosage: 300 MG, QD
     Route: 048
     Dates: start: 20171013
  5. ZEJULA [Suspect]
     Active Substance: NIRAPARIB
     Indication: MALIGNANT PERITONEAL NEOPLASM
     Dosage: 200 MG, QD
     Route: 048
     Dates: start: 201711, end: 20180309
  6. ZEJULA [Suspect]
     Active Substance: NIRAPARIB
     Dosage: 200 MG, QD
     Route: 048

REACTIONS (16)
  - Impaired work ability [Recovered/Resolved]
  - Fatigue [Unknown]
  - Peripheral swelling [Recovered/Resolved]
  - Lip swelling [Recovered/Resolved with Sequelae]
  - Dyspepsia [Unknown]
  - Hernia [Unknown]
  - Joint swelling [Not Recovered/Not Resolved]
  - Weight increased [Unknown]
  - Swelling face [Recovered/Resolved with Sequelae]
  - Contusion [Recovered/Resolved]
  - Incorrect dose administered [Recovered/Resolved]
  - Flatulence [Unknown]
  - Abdominal distension [Recovered/Resolved]
  - Drug dose omission [Not Recovered/Not Resolved]
  - Abdominal discomfort [Not Recovered/Not Resolved]
  - Neuropathy peripheral [Not Recovered/Not Resolved]

NARRATIVE: CASE EVENT DATE: 201710
